FAERS Safety Report 22137037 (Version 4)
Quarter: 2023Q4

REPORT INFORMATION
  Report Type: Report from Study
  Country: CA (occurrence: None)
  Receive Date: 20230324
  Receipt Date: 20231204
  Transmission Date: 20240110
  Serious: Yes (Life-Threatening, Hospitalization, Other)
  Sender: FDA-Public Use
  Company Number: CA-PFIZER INC-202300122012

PATIENT
  Age: 60 Year
  Sex: Female

DRUGS (10)
  1. METHOTREXATE [Suspect]
     Active Substance: METHOTREXATE
     Indication: Product used for unknown indication
  2. COSENTYX [Suspect]
     Active Substance: SECUKINUMAB
     Indication: Psoriasis
  3. COSENTYX [Suspect]
     Active Substance: SECUKINUMAB
  4. COSENTYX [Suspect]
     Active Substance: SECUKINUMAB
  5. COSENTYX [Suspect]
     Active Substance: SECUKINUMAB
  6. COSENTYX [Suspect]
     Active Substance: SECUKINUMAB
  7. COSENTYX [Suspect]
     Active Substance: SECUKINUMAB
  8. ACITRETIN [Concomitant]
     Active Substance: ACITRETIN
  9. NEORAL [Concomitant]
     Active Substance: CYCLOSPORINE
  10. SORIATANE [Concomitant]
     Active Substance: ACITRETIN

REACTIONS (16)
  - Drug ineffective [Unknown]
  - Off label use [Unknown]
  - Blood cholesterol abnormal [Unknown]
  - Fatigue [Unknown]
  - Intellectual disability [Unknown]
  - Malaise [Unknown]
  - Myocardial infarction [Unknown]
  - Nephrolithiasis [Unknown]
  - Pain [Unknown]
  - Pain of skin [Unknown]
  - Pruritus [Unknown]
  - Pulmonary mass [Unknown]
  - Renal failure [Unknown]
  - Ulcer [Unknown]
  - Urinary tract infection [Unknown]
  - Renal impairment [Unknown]
